FAERS Safety Report 5093903-9 (Version None)
Quarter: 2006Q3

REPORT INFORMATION
  Report Type: 
  Country: None (occurrence: None)
  Receive Date: 20060728
  Receipt Date: 20060628
  Transmission Date: 20061208
  Serious: No
  Sender: FDA-Public Use
  Company Number: 254518

PATIENT
  Age: 75 Year
  Sex: Female
  Weight: 57.1 kg

DRUGS (3)
  1. LEVEMIR ` [Suspect]
     Indication: INSULIN-REQUIRING TYPE II DIABETES MELLITUS
     Dosage: 9IU, QD, SUBCUTANEOUS
     Route: 058
     Dates: start: 20060601, end: 20060601
  2. LEVEMIR [Suspect]
     Indication: INSULIN-REQUIRING TYPE II DIABETES MELLITUS
     Dosage: 8 IU, QD, SUBCUTANEOUS
     Route: 058
     Dates: start: 20060601
  3. NOVOLOG [Concomitant]

REACTIONS (1)
  - BLOOD GLUCOSE FLUCTUATION [None]
